FAERS Safety Report 6787281-4 (Version None)
Quarter: 2010Q2

REPORT INFORMATION
  Report Type: 
  Country: None (occurrence: None)
  Receive Date: 20100621
  Receipt Date: 20100607
  Transmission Date: 20101027
  Serious: Yes (Death, Other)
  Sender: FDA-Public Use
  Company Number: MC201000173

PATIENT
  Sex: 0

DRUGS (5)
  1. ANGIOMAX [Suspect]
     Indication: CAROTID ARTERY STENT INSERTION
     Dosage: 0.75 MG/KG, BOLUS, INTRAVENOUS, 205 MG/KG, HR, INTRAVENOUS
     Route: 042
  2. ASPIRIN [Concomitant]
  3. TICLOPIDINE HYDROCHLORIDE [Concomitant]
  4. CLOPIDOGREL [Concomitant]
  5. HEPARIN [Concomitant]

REACTIONS (18)
  - ACUTE CORONARY SYNDROME [None]
  - AORTIC STENOSIS [None]
  - CARDIAC ARREST [None]
  - CEREBROVASCULAR ACCIDENT [None]
  - CONTRAST MEDIA REACTION [None]
  - CORONARY ARTERY OCCLUSION [None]
  - FEMORAL ARTERY DISSECTION [None]
  - HAEMORRHAGIC STROKE [None]
  - LEFT VENTRICULAR FAILURE [None]
  - MULTI-ORGAN FAILURE [None]
  - NEPHROPATHY TOXIC [None]
  - PNEUMONIA [None]
  - PROCEDURAL COMPLICATION [None]
  - PULMONARY OEDEMA [None]
  - RENAL FAILURE ACUTE [None]
  - SUBARACHNOID HAEMORRHAGE [None]
  - VASCULAR PSEUDOANEURYSM [None]
  - VENTRICULAR FIBRILLATION [None]
